FAERS Safety Report 19749107 (Version 3)
Quarter: 2021Q3

REPORT INFORMATION
  Report Type: Report from Study
  Country: US (occurrence: US)
  Receive Date: 20210826
  Receipt Date: 20210830
  Transmission Date: 20211014
  Serious: Yes (Other)
  Sender: FDA-Public Use
  Company Number: US-GLAXOSMITHKLINE-US2021AMR176038

PATIENT
  Age: 83 Year
  Sex: Female

DRUGS (1)
  1. BELANTAMAB MAFODOTIN. [Suspect]
     Active Substance: BELANTAMAB MAFODOTIN
     Indication: PLASMA CELL MYELOMA
     Dosage: 157.2 MG, CYCLE 2
     Route: 042
     Dates: start: 20210714

REACTIONS (7)
  - Dry eye [Not Recovered/Not Resolved]
  - Diplopia [Unknown]
  - Vision blurred [Unknown]
  - Night blindness [Not Recovered/Not Resolved]
  - Visual acuity reduced [Unknown]
  - Photophobia [Unknown]
  - Keratopathy [Unknown]

NARRATIVE: CASE EVENT DATE: 20210811
